FAERS Safety Report 5504782-7 (Version None)
Quarter: 2007Q4

REPORT INFORMATION
  Report Type: 
  Country: None (occurrence: None)
  Receive Date: 20071031
  Receipt Date: 20071031
  Transmission Date: 20080405
  Serious: Yes (Hospitalization)
  Sender: FDA-Public Use
  Company Number: None

PATIENT
  Sex: Female
  Weight: 72.2 kg

DRUGS (6)
  1. FLUDARABINE PHOSPHATE [Suspect]
     Indication: CHRONIC LYMPHOCYTIC LEUKAEMIA
     Dosage: 25 MG/M2 DAYS 1-3 Q 4 WKS X 6 MONTHS IV
     Route: 042
     Dates: start: 20060812
  2. FLUDARABINE PHOSPHATE [Suspect]
     Indication: CHRONIC LYMPHOCYTIC LEUKAEMIA
     Dosage: 25 MG/M2 DAYS 1-3 Q 4 WKS X 6 MONTHS IV
     Route: 042
     Dates: start: 20060813
  3. FLUDARABINE PHOSPHATE [Suspect]
     Indication: CHRONIC LYMPHOCYTIC LEUKAEMIA
     Dosage: 25 MG/M2 DAYS 1-3 Q 4 WKS X 6 MONTHS IV
     Route: 042
     Dates: start: 20060814
  4. CYCLOPHOSPHAMIDE [Suspect]
     Indication: CHRONIC LYMPHOCYTIC LEUKAEMIA
     Dosage: 250 MG/M2 DAYS 1-3 Q 4 WKS X 6 MONTHS IV
     Route: 042
     Dates: start: 20060812
  5. CYCLOPHOSPHAMIDE [Suspect]
     Indication: CHRONIC LYMPHOCYTIC LEUKAEMIA
     Dosage: 250 MG/M2 DAYS 1-3 Q 4 WKS X 6 MONTHS IV
     Route: 042
     Dates: start: 20060813
  6. CYCLOPHOSPHAMIDE [Suspect]
     Indication: CHRONIC LYMPHOCYTIC LEUKAEMIA
     Dosage: 250 MG/M2 DAYS 1-3 Q 4 WKS X 6 MONTHS IV
     Route: 042
     Dates: start: 20060814

REACTIONS (6)
  - CHILLS [None]
  - DIARRHOEA [None]
  - HAEMOLYTIC ANAEMIA [None]
  - NAUSEA [None]
  - NEUTROPHIL COUNT DECREASED [None]
  - VOMITING [None]
